FAERS Safety Report 9846787 (Version 2)
Quarter: 2014Q1

REPORT INFORMATION
  Report Type: Spontaneous
  Country: DE (occurrence: DE)
  Receive Date: 20140127
  Receipt Date: 20140311
  Transmission Date: 20141002
  Serious: Yes (Other)
  Sender: FDA-Public Use
  Company Number: PHHY2014DE006339

PATIENT
  Age: 18 Year
  Sex: Male

DRUGS (4)
  1. TACROLIMUS [Suspect]
  2. FLUCONAZOLE [Suspect]
  3. NEUROCIL [Suspect]
     Indication: AGITATION
  4. LORAZEPAM [Concomitant]
     Indication: AGITATION

REACTIONS (3)
  - Ventricular tachycardia [Unknown]
  - Cardiac arrest [Unknown]
  - Electrocardiogram QT prolonged [Recovering/Resolving]
